FAERS Safety Report 5276900-X (Version None)
Quarter: 2007Q1

REPORT INFORMATION
  Report Type: 
  Country: None (occurrence: None)
  Receive Date: 20070327
  Receipt Date: 20070319
  Transmission Date: 20070707
  Serious: Yes (Other)
  Sender: FDA-Public Use
  Company Number: PHBS2007BR04951

PATIENT
  Sex: Female

DRUGS (1)
  1. ZOMETA [Suspect]
     Dates: end: 20040501

REACTIONS (3)
  - BACTERIAL INFECTION [None]
  - DENTAL OPERATION [None]
  - OSTEONECROSIS [None]
